FAERS Safety Report 6958538-9 (Version None)
Quarter: 2010Q3

REPORT INFORMATION
  Report Type: 
  Country: None (occurrence: None)
  Receive Date: 20100831
  Receipt Date: 20100820
  Transmission Date: 20110219
  Serious: Yes (Other)
  Sender: FDA-Public Use
  Company Number: JP-MERCK-1007USA04100

PATIENT
  Age: 55 Year
  Sex: Male

DRUGS (2)
  1. JANUVIA [Suspect]
     Indication: TYPE 2 DIABETES MELLITUS
     Route: 048
     Dates: start: 20100526, end: 20100721
  2. AVAPRO [Concomitant]
     Indication: DYSLIPIDAEMIA
     Route: 048
     Dates: start: 20100526

REACTIONS (1)
  - HYPERGLYCAEMIA [None]
